FAERS Safety Report 5830329-1 (Version None)
Quarter: 2008Q3

REPORT INFORMATION
  Report Type: 
  Country: None (occurrence: None)
  Receive Date: 20080801
  Receipt Date: 20080724
  Transmission Date: 20090109
  Serious: Yes (Disabling)
  Sender: FDA-Public Use
  Company Number: US-MERCK-0805USA00716

PATIENT
  Age: 59 Year
  Sex: Female
  Weight: 49 kg

DRUGS (1)
  1. FOSAMAX [Suspect]
     Indication: OSTEOPOROSIS
     Route: 048
     Dates: start: 19970101, end: 20060601

REACTIONS (7)
  - CERVICAL DYSPLASIA [None]
  - JAW DISORDER [None]
  - OSTEOMYELITIS [None]
  - OSTEONECROSIS [None]
  - OSTEORADIONECROSIS [None]
  - PERIODONTITIS [None]
  - TOOTH DISORDER [None]
